FAERS Safety Report 5696666-9 (Version None)
Quarter: 2008Q2

REPORT INFORMATION
  Report Type: 
  Country: None (occurrence: None)
  Receive Date: 20080408
  Receipt Date: 20060918
  Transmission Date: 20081010
  Serious: No
  Sender: FDA-Public Use
  Company Number: US-BAYER-US-2006-027569

PATIENT
  Age: 17 Year
  Sex: Female
  Weight: 59 kg

DRUGS (5)
  1. YASMIN [Suspect]
     Indication: ORAL CONTRACEPTION
     Route: 048
     Dates: start: 20060501
  2. ACIPHEX [Concomitant]
  3. VITAMINS, OTHER COMBINATIONS [Concomitant]
  4. VITAMINS, OTHER COMBINATIONS [Concomitant]
  5. ALLERGY MEDICATION [Concomitant]

REACTIONS (1)
  - POLYMENORRHOEA [None]
